FAERS Safety Report 7357645-9 (Version None)
Quarter: 2011Q1

REPORT INFORMATION
  Report Type: 
  Country: None (occurrence: None)
  Receive Date: 20110317
  Receipt Date: 20110310
  Transmission Date: 20110831
  Serious: Yes (Death, Hospitalization)
  Sender: FDA-Public Use
  Company Number: JP-ELI_LILLY_AND_COMPANY-JP201102005369

PATIENT
  Sex: Female
  Weight: 41.5 kg

DRUGS (2)
  1. DECADRON [Concomitant]
     Indication: DECREASED APPETITE
     Dosage: 2 MG, DAILY (1/D)
     Route: 048
     Dates: start: 20100902, end: 20110201
  2. GEMZAR [Suspect]
     Indication: PANCREATIC CARCINOMA STAGE IV
     Dosage: 1300 MG, OTHER
     Route: 042
     Dates: start: 20100902, end: 20110106

REACTIONS (2)
  - INTERSTITIAL LUNG DISEASE [None]
  - NEOPLASM MALIGNANT [None]
